FAERS Safety Report 6567207-9 (Version None)
Quarter: 2010Q1

REPORT INFORMATION
  Report Type: 
  Country: None (occurrence: None)
  Receive Date: 20100202
  Receipt Date: 20100128
  Transmission Date: 20100710
  Serious: Yes (Other)
  Sender: FDA-Public Use
  Company Number: AU-RB-001421-10

PATIENT
  Age: 31 Year
  Sex: Female

DRUGS (3)
  1. NORSPAN 20 [Suspect]
     Indication: PAIN
     Dosage: 20 MCG/HR
     Route: 062
     Dates: start: 20090515, end: 20091124
  2. GABAPENTIN [Concomitant]
     Indication: DRUG USE FOR UNKNOWN INDICATION
     Dosage: DOSING INFORMATION UNKNOWN.
     Route: 065
  3. NORTRIPTYLINE HYDROCHLORIDE [Concomitant]
     Indication: DRUG USE FOR UNKNOWN INDICATION
     Dosage: DOSING INFORMATION UNKNOWN.
     Route: 065

REACTIONS (5)
  - APPLICATION SITE REACTION [None]
  - HALLUCINATION [None]
  - NAUSEA [None]
  - PYREXIA [None]
  - VOMITING [None]
